FAERS Safety Report 21920395 (Version 1)
Quarter: 2023Q1

REPORT INFORMATION
  Report Type: Report from Study
  Country: US (occurrence: US)
  Receive Date: 20230127
  Receipt Date: 20230127
  Transmission Date: 20230418
  Serious: Yes (Other)
  Sender: FDA-Public Use
  Company Number: US-JNJFOC-20230144721

PATIENT
  Age: 37 Year
  Sex: Male

DRUGS (18)
  1. SPRAVATO [Suspect]
     Active Substance: ESKETAMINE
     Indication: Depression
     Dosage: ^56 MG, 1 TOTAL DOSE^
     Dates: start: 20230117, end: 20230117
  2. PERIDEX [CHLORHEXIDINE GLUCONATE] [Concomitant]
     Indication: Gingivitis
     Dosage: AFTER BRUSHING SWISH 15 ML BY MOUTH FOR 30SECONDS TWICE A DAY.
     Route: 048
     Dates: start: 20190723
  3. DESCOVY [Concomitant]
     Active Substance: EMTRICITABINE\TENOFOVIR ALAFENAMIDE FUMARATE
     Indication: Prophylaxis against HIV infection
     Route: 065
     Dates: start: 20210602
  4. LIPITOR [Concomitant]
     Active Substance: ATORVASTATIN CALCIUM
     Indication: Blood cholesterol increased
     Route: 065
     Dates: start: 20210616
  5. BAYER ADVANCED ASPIRIN [Concomitant]
     Indication: Pain
     Dosage: TWO 500 MG TABLETS EVERY EIGHT HOURS AS NEEDED
     Route: 065
     Dates: start: 20190920
  6. LIDOCAINE [Concomitant]
     Active Substance: LIDOCAINE
     Indication: Pain
     Dosage: THIN LAYER TO AFFECTED AREA EVERY EIGHT HOURS AS NEEDED
     Route: 061
     Dates: start: 20190416
  7. MAXZIDE [Concomitant]
     Active Substance: HYDROCHLOROTHIAZIDE\TRIAMTERENE
     Indication: Hypertension
     Dosage: 37.5-25 MG
     Route: 065
     Dates: start: 20210417
  8. SERAX [OXAZEPAM] [Concomitant]
     Indication: Anxiety
     Route: 065
     Dates: start: 20220228
  9. PROSCAR [Concomitant]
     Active Substance: FINASTERIDE
     Indication: Benign prostatic hyperplasia
     Route: 065
     Dates: start: 20190920
  10. CIALIS [Concomitant]
     Active Substance: TADALAFIL
     Indication: Benign prostatic hyperplasia
     Route: 065
     Dates: start: 20190920
  11. ATARAX [Concomitant]
     Active Substance: HYDROXYZINE HYDROCHLORIDE
     Indication: Anxiety
     Route: 065
     Dates: start: 20210708
  12. LONITEN [Concomitant]
     Active Substance: MINOXIDIL
     Indication: Hypertension
     Route: 065
     Dates: start: 20190920
  13. LOPRESSOR [Concomitant]
     Active Substance: METOPROLOL TARTRATE
     Indication: Tachycardia
     Route: 065
     Dates: start: 20220109
  14. TYLENOL [Concomitant]
     Active Substance: ACETAMINOPHEN
     Indication: Pain
     Route: 065
     Dates: start: 20190920
  15. TRINTELLIX [Concomitant]
     Active Substance: VORTIOXETINE HYDROBROMIDE
     Indication: Depression
     Route: 065
     Dates: start: 20190429
  16. TRINTELLIX [Concomitant]
     Active Substance: VORTIOXETINE HYDROBROMIDE
     Route: 065
     Dates: start: 20190429
  17. SEROQUEL [Concomitant]
     Active Substance: QUETIAPINE FUMARATE
     Indication: Insomnia
     Route: 065
     Dates: start: 20181122
  18. SEROQUEL [Concomitant]
     Active Substance: QUETIAPINE FUMARATE
     Indication: Anxiety
     Route: 065
     Dates: start: 20181122

REACTIONS (9)
  - Flushing [Unknown]
  - Synaesthesia [Unknown]
  - Daydreaming [Unknown]
  - Hypoaesthesia oral [Unknown]
  - Paraesthesia [Unknown]
  - Irritability [Unknown]
  - Headache [Recovered/Resolved]
  - Sedation [Unknown]
  - Dissociation [Unknown]

NARRATIVE: CASE EVENT DATE: 20230117
